FAERS Safety Report 8258744-X (Version None)
Quarter: 2012Q2

REPORT INFORMATION
  Report Type: 
  Country: None (occurrence: None)
  Receive Date: 20120404
  Receipt Date: 20120404
  Transmission Date: 20120825
  Serious: Yes (Disabling)
  Sender: FDA-Public Use
  Company Number: None

PATIENT
  Age: 42 Year
  Sex: Female
  Weight: 58.5 kg

DRUGS (2)
  1. OMNIPAQUE 140 [Suspect]
     Indication: COMPUTERISED TOMOGRAM ABDOMEN
     Dosage: 100ML
     Route: 042
     Dates: start: 20120330, end: 20120330
  2. OMNIPAQUE 140 [Suspect]
     Indication: ORGAN DONOR
     Dosage: 100ML
     Route: 042
     Dates: start: 20120330, end: 20120330

REACTIONS (9)
  - SWELLING FACE [None]
  - DYSPNOEA [None]
  - OCULAR HYPERAEMIA [None]
  - PRURITUS [None]
  - THROAT TIGHTNESS [None]
  - EYE SWELLING [None]
  - LIP SWELLING [None]
  - URTICARIA [None]
  - ORBITAL OEDEMA [None]
